FAERS Safety Report 19374925 (Version 2)
Quarter: 2021Q4

REPORT INFORMATION
  Report Type: Report from Study
  Country: CN (occurrence: CN)
  Receive Date: 20210604
  Receipt Date: 20211027
  Transmission Date: 20220303
  Serious: Yes (Hospitalization, Other)
  Sender: FDA-Public Use
  Company Number: NVSC2021CN121264

PATIENT
  Age: 67 Year
  Sex: Female
  Weight: 43 kg

DRUGS (9)
  1. TYKERB [Suspect]
     Active Substance: LAPATINIB DITOSYLATE
     Indication: HER2 positive breast cancer
     Dosage: TABLET, 1250 MG, QD
     Route: 048
     Dates: start: 20210503
  2. CAPECITABINE [Suspect]
     Active Substance: CAPECITABINE
     Indication: HER2 positive breast cancer
     Dosage: 500 MG, BID
     Route: 048
     Dates: start: 20210503, end: 20210518
  3. CAPECITABINE [Suspect]
     Active Substance: CAPECITABINE
     Dosage: 450 MG, BID
     Route: 048
     Dates: start: 20210503, end: 20210518
  4. CAPECITABINE [Suspect]
     Active Substance: CAPECITABINE
     Dosage: 1450 MG
     Route: 048
     Dates: end: 20210530
  5. CAPECITABINE [Suspect]
     Active Substance: CAPECITABINE
     Dosage: 1100 MG, BID
     Route: 048
     Dates: start: 20210530
  6. INSULIN NOS [Concomitant]
     Active Substance: INSULIN NOS
     Dosage: 61U ,ONE TIME
     Route: 041
     Dates: start: 20210524, end: 20210526
  7. INSULIN NOS [Concomitant]
     Active Substance: INSULIN NOS
     Dosage: 61U ,ONE TIME
     Route: 041
     Dates: start: 20210528, end: 20210528
  8. INSULIN NOS [Concomitant]
     Active Substance: INSULIN NOS
     Dosage: 61U ,ONE TIME
     Route: 041
     Dates: start: 20210529, end: 20210529
  9. VITAMIN B6 [Concomitant]
     Active Substance: PYRIDOXINE HYDROCHLORIDE
     Indication: Vitamin supplementation
     Dosage: 100 ML, ONCE
     Route: 041
     Dates: start: 20210525, end: 20210525

REACTIONS (5)
  - Hypokalaemia [Recovered/Resolved]
  - Hyponatraemia [Recovered/Resolved]
  - White blood cell count decreased [Recovered/Resolved]
  - Neutrophil count decreased [Recovered/Resolved]
  - Anaemia [Not Recovered/Not Resolved]

NARRATIVE: CASE EVENT DATE: 20210524
